FAERS Safety Report 7218058-3 (Version None)
Quarter: 2011Q1

REPORT INFORMATION
  Report Type: 
  Country: None (occurrence: None)
  Receive Date: 20110110
  Receipt Date: 20101229
  Transmission Date: 20110831
  Serious: Yes (Other)
  Sender: FDA-Public Use
  Company Number: US-ELI_LILLY_AND_COMPANY-US201010004143

PATIENT
  Sex: Female

DRUGS (12)
  1. ATIVAN [Concomitant]
     Dosage: UNK, UNKNOWN
  2. ARICEPT [Concomitant]
     Dosage: UNK, UNKNOWN
  3. NORVASC [Concomitant]
     Dosage: UNK, UNKNOWN
  4. COREG [Concomitant]
     Dosage: UNK, UNKNOWN
  5. HYDROCHLOROTHIAZIDE [Concomitant]
     Dosage: UNK, UNKNOWN
  6. PAXIL [Concomitant]
     Dosage: UNK, UNKNOWN
  7. FORTEO [Suspect]
     Dosage: 20 UG, DAILY (1/D)
     Dates: start: 20101101, end: 20101213
  8. FORTEO [Suspect]
     Indication: OSTEOPOROSIS
     Dosage: 20 UG, DAILY (1/D)
     Route: 058
     Dates: start: 20100921, end: 20101101
  9. AMITRIPTYLINE [Concomitant]
     Dosage: UNK, UNKNOWN
  10. CALTRATE [Concomitant]
     Dosage: UNK, UNKNOWN
  11. VITAMIN B [Concomitant]
     Dosage: UNK, UNKNOWN
  12. GLIPIZIDE [Concomitant]
     Dosage: UNK, UNKNOWN

REACTIONS (9)
  - BLOOD GLUCOSE INCREASED [None]
  - BACK PAIN [None]
  - ABASIA [None]
  - MONOPARESIS [None]
  - FALL [None]
  - HEAD INJURY [None]
  - DYSSTASIA [None]
  - LOSS OF CONTROL OF LEGS [None]
  - MUSCLE RIGIDITY [None]
